FAERS Safety Report 9988917 (Version 2)
Quarter: 2014Q1

REPORT INFORMATION
  Report Type: Report from Study
  Country: US (occurrence: US)
  Receive Date: 20140310
  Receipt Date: 20140310
  Transmission Date: 20141002
  Serious: No
  Sender: FDA-Public Use
  Company Number: US-ABBVIE-13P-163-1107590-00

PATIENT
  Age: 62 Year
  Sex: Male

DRUGS (3)
  1. HUMIRA [Suspect]
     Indication: ANKYLOSING SPONDYLITIS
     Dates: start: 20130506
  2. BENICAR [Concomitant]
     Indication: BLOOD PRESSURE MANAGEMENT
  3. ANTIHYPERTENSIVES [Concomitant]
     Indication: HYPERTENSION

REACTIONS (6)
  - Injection site irritation [Recovered/Resolved]
  - Injection site pruritus [Recovering/Resolving]
  - Injection site swelling [Recovered/Resolved]
  - Injection site erythema [Recovered/Resolved]
  - Injection site erythema [Recovered/Resolved]
  - Injection site swelling [Recovered/Resolved]
